FAERS Safety Report 7555201-0 (Version None)
Quarter: 2011Q2

REPORT INFORMATION
  Report Type: 
  Country: None (occurrence: None)
  Receive Date: 20110617
  Receipt Date: 20110607
  Transmission Date: 20111010
  Serious: Yes (Hospitalization)
  Sender: FDA-Public Use
  Company Number: PHHY2011DE42094

PATIENT
  Sex: Female
  Weight: 82 kg

DRUGS (1)
  1. EXTAVIA [Suspect]
     Indication: MULTIPLE SCLEROSIS
     Dosage: 250 UG, QOD
     Route: 058
     Dates: start: 20110301, end: 20110330

REACTIONS (4)
  - RENAL PAIN [None]
  - BACK PAIN [None]
  - PYELONEPHRITIS [None]
  - CHILLS [None]
